FAERS Safety Report 9441543 (Version 2)
Quarter: 2013Q3

REPORT INFORMATION
  Report Type: Spontaneous
  Country: AT (occurrence: AT)
  Receive Date: 20130805
  Receipt Date: 20130814
  Transmission Date: 20140515
  Serious: Yes (Hospitalization)
  Sender: FDA-Public Use
  Company Number: AT-ROCHE-1256728

PATIENT
  Age: 66 Year
  Sex: Female

DRUGS (5)
  1. MABTHERA [Suspect]
     Indication: LYMPHOMA
     Route: 065
     Dates: start: 201211, end: 201305
  2. XANOR [Concomitant]
  3. SERETIDE [Concomitant]
  4. OLEOVIT [Concomitant]
     Route: 048
  5. PANTOLOC [Concomitant]

REACTIONS (1)
  - Progressive multifocal leukoencephalopathy [Not Recovered/Not Resolved]
